FAERS Safety Report 7989759-4 (Version None)
Quarter: 2011Q4

REPORT INFORMATION
  Report Type: 
  Country: None (occurrence: None)
  Receive Date: 20111219
  Receipt Date: 20110303
  Transmission Date: 20120403
  Serious: Yes (Hospitalization)
  Sender: FDA-Public Use
  Company Number: US-ASTRAZENECA-2011SE11823

PATIENT
  Age: 79 Year
  Sex: Male

DRUGS (2)
  1. CRESTOR [Suspect]
     Route: 048
     Dates: start: 20100701, end: 20101101
  2. CRESTOR [Suspect]
     Route: 048
     Dates: start: 20100501, end: 20100701

REACTIONS (1)
  - RHABDOMYOLYSIS [None]
